FAERS Safety Report 12134327 (Version 2)
Quarter: 2016Q2

REPORT INFORMATION
  Report Type: Report from Study
  Country: US (occurrence: US)
  Receive Date: 20160301
  Receipt Date: 20160414
  Transmission Date: 20160815
  Serious: No
  Sender: FDA-Public Use
  Company Number: PHEH2016US005014

PATIENT
  Age: 7 Year
  Sex: Female

DRUGS (5)
  1. ILARIS [Suspect]
     Active Substance: CANAKINUMAB
     Indication: JUVENILE IDIOPATHIC ARTHRITIS
     Dosage: 180 MG, UNK
     Route: 058
  2. ILARIS [Suspect]
     Active Substance: CANAKINUMAB
     Dosage: 1 DF (0.88ML (134MG)), UNK
     Route: 058
     Dates: start: 20160222
  3. ILARIS [Suspect]
     Active Substance: CANAKINUMAB
     Dosage: 160 MG, QW4
     Route: 058
  4. ILARIS [Suspect]
     Active Substance: CANAKINUMAB
     Dosage: 1 DF (0.88ML (134MG)), UNK
     Route: 058
     Dates: start: 20151012
  5. ILARIS [Suspect]
     Active Substance: CANAKINUMAB
     Dosage: 1 DF(0.88ML (134MG)), UNK, UNK
     Route: 058
     Dates: start: 20160111

REACTIONS (2)
  - Headache [Unknown]
  - Incorrect dose administered [Unknown]

NARRATIVE: CASE EVENT DATE: 20160222
